FAERS Safety Report 7090872-7 (Version None)
Quarter: 2010Q4

REPORT INFORMATION
  Report Type: 
  Country: None (occurrence: None)
  Receive Date: 20101109
  Receipt Date: 20101007
  Transmission Date: 20110411
  Serious: Yes (Hospitalization)
  Sender: FDA-Public Use
  Company Number: US-BAYER-201037428NA

PATIENT
  Age: 49 Year
  Sex: Female
  Weight: 82 kg

DRUGS (7)
  1. BETASERON [Suspect]
     Indication: PRODUCT USED FOR UNKNOWN INDICATION
     Dosage: TOTAL DAILY DOSE: 0.3 MG
     Route: 058
  2. DETROL LA [Concomitant]
  3. BACLOFEN [Concomitant]
  4. VALTREX [Concomitant]
  5. LEVOTHYROXINE SODIUM [Concomitant]
  6. NEXIUM [Concomitant]
  7. CELEXA [Concomitant]

REACTIONS (3)
  - FACIAL BONES FRACTURE [None]
  - FALL [None]
  - MENINGITIS [None]
